FAERS Safety Report 9647767 (Version 2)
Quarter: 2014Q1

REPORT INFORMATION
  Report Type: Spontaneous
  Country: GB (occurrence: GB)
  Receive Date: 20131028
  Receipt Date: 20140205
  Transmission Date: 20141002
  Serious: Yes (Hospitalization)
  Sender: FDA-Public Use
  Company Number: GB-JNJFOC-20131012187

PATIENT
  Age: 67 Year
  Sex: Female

DRUGS (22)
  1. DUROGESIC D TRANS [Suspect]
     Indication: PAIN
     Route: 062
     Dates: start: 20131001, end: 20131003
  2. DOMPERIDONE [Concomitant]
     Indication: PRODUCT USED FOR UNKNOWN INDICATION
     Route: 065
  3. ALENDRONIC ACID [Concomitant]
     Route: 065
  4. AZATHIOPRINE [Concomitant]
     Route: 065
  5. CALCEOS [Concomitant]
     Route: 065
  6. CARBAMAZEPINE [Concomitant]
     Route: 065
  7. CETIRIZINE [Concomitant]
     Route: 065
  8. CO-BENELDOPA [Concomitant]
     Route: 065
  9. DIAZEPAM [Concomitant]
     Route: 065
  10. DOCUSATE [Concomitant]
     Route: 065
  11. FLUTICASONE [Concomitant]
     Route: 065
  12. FUROSEMIDE [Concomitant]
     Route: 065
  13. HYDROXYCHLOROQUINE SULPHATE [Concomitant]
     Route: 065
  14. LEVOTHYROXINE [Concomitant]
     Route: 065
  15. OMEPRAZOLE [Concomitant]
     Route: 065
  16. PEPPERMINT OIL [Concomitant]
     Route: 065
  17. PREDNISOLONE [Concomitant]
     Route: 065
  18. PREGABALIN [Concomitant]
     Route: 065
  19. SERTRALINE [Concomitant]
     Route: 065
  20. SIMVASTATIN [Concomitant]
     Route: 065
  21. TINZAPARIN [Concomitant]
     Route: 065
  22. TIOTROPIUM [Concomitant]
     Route: 065

REACTIONS (7)
  - Dehydration [Unknown]
  - Urine output decreased [Unknown]
  - Vomiting [Not Recovered/Not Resolved]
  - Hypophagia [Unknown]
  - Diarrhoea [Unknown]
  - Abdominal pain upper [Unknown]
  - Gastroenteritis [Unknown]
